FAERS Safety Report 25853785 (Version 1)
Quarter: 2025Q3

REPORT INFORMATION
  Report Type: Spontaneous
  Country: US (occurrence: US)
  Receive Date: 20250926
  Receipt Date: 20250926
  Transmission Date: 20251021
  Serious: Yes (Other)
  Sender: ELI LILLY AND COMPANY
  Company Number: US-ELI_LILLY_AND_COMPANY-US202509021300

PATIENT
  Age: 65 Year
  Sex: Female

DRUGS (2)
  1. FORTEO [Suspect]
     Active Substance: TERIPARATIDE
     Indication: Bone disorder
     Route: 065
     Dates: start: 2023, end: 202505
  2. EMGALITY [Concomitant]
     Active Substance: GALCANEZUMAB-GNLM
     Indication: Product used for unknown indication
     Route: 065

REACTIONS (4)
  - Cervical vertebral fracture [Unknown]
  - Foot fracture [Not Recovered/Not Resolved]
  - Brain fog [Unknown]
  - Off label use [Unknown]

NARRATIVE: CASE EVENT DATE: 20230101
